FAERS Safety Report 5348877-X (Version None)
Quarter: 2007Q2

REPORT INFORMATION
  Report Type: 
  Country: None (occurrence: None)
  Receive Date: 20070607
  Receipt Date: 20070528
  Transmission Date: 20071010
  Serious: Yes (Other)
  Sender: FDA-Public Use
  Company Number: PHHO2007BR08958

PATIENT
  Age: 52 Year
  Sex: Female
  Weight: 77 kg

DRUGS (2)
  1. ZELMAC / HTF 919A [Suspect]
     Indication: GASTROINTESTINAL DISORDER
     Dosage: UNK, BID
     Route: 048
     Dates: start: 20070401
  2. LEXAPRO [Concomitant]

REACTIONS (5)
  - ARRHYTHMIA [None]
  - BLOOD PRESSURE DECREASED [None]
  - DIZZINESS [None]
  - HEADACHE [None]
  - HEART RATE INCREASED [None]
